FAERS Safety Report 21568351 (Version 3)
Quarter: 2023Q2

REPORT INFORMATION
  Report Type: Report from Study
  Country: MY (occurrence: MY)
  Receive Date: 20221108
  Receipt Date: 20230403
  Transmission Date: 20230721
  Serious: Yes (Life-Threatening, Hospitalization)
  Sender: FDA-Public Use
  Company Number: MY-PFIZER INC-PV202200087278

PATIENT
  Age: 45 Year
  Sex: Male
  Weight: 100 kg

DRUGS (11)
  1. DACOMITINIB [Suspect]
     Active Substance: DACOMITINIB
     Indication: Non-small cell lung cancer
     Dosage: 30 MG, 1X/DAY
     Route: 048
     Dates: start: 20211209, end: 20221020
  2. DIPHENHYDRAMINE [Concomitant]
     Active Substance: DIPHENHYDRAMINE
     Indication: Cough
     Dosage: 15 ML, AS NEEDED
     Route: 048
     Dates: start: 20211201
  3. LOPERAMIDE [Concomitant]
     Active Substance: LOPERAMIDE
     Indication: Diarrhoea
     Dosage: 2 MG, AS NEEDED
     Route: 048
     Dates: start: 20211209
  4. LOMOTIL [Concomitant]
     Active Substance: ATROPINE SULFATE\DIPHENOXYLATE HYDROCHLORIDE
     Indication: Diarrhoea
     Dosage: 2 TABLETS
     Route: 048
     Dates: start: 20211209
  5. AQUEOUS CALAMINE [Concomitant]
     Indication: Dry skin
     Dosage: 1 APPLICATION TDS
     Route: 061
     Dates: start: 20211209
  6. BETAMETHASONE [Concomitant]
     Active Substance: BETAMETHASONE
     Indication: Rash
     Dosage: LA PRD/BD
     Route: 061
     Dates: start: 20211209
  7. UREA CREAM WITH LACTIC ACID [Concomitant]
     Indication: Paronychia
     Dosage: LA PRD/BD
     Route: 061
     Dates: start: 20211209
  8. GENTAMICIN [Concomitant]
     Active Substance: GENTAMICIN
     Indication: Paronychia
     Dosage: LA PRD/BD
     Route: 061
     Dates: start: 20211209
  9. ORAL REHYDRATION SALT [Concomitant]
     Indication: Diarrhoea
     Dosage: 1 SACHET/PURGE
     Route: 048
     Dates: start: 20211209
  10. MUPIROCIN [Concomitant]
     Active Substance: MUPIROCIN
     Indication: Paronychia
     Dosage: LA TDS
     Route: 061
     Dates: start: 20220204
  11. MORPHINE [Concomitant]
     Active Substance: MORPHINE
     Indication: Cough
     Dosage: UNK
     Route: 048
     Dates: start: 20221020

REACTIONS (2)
  - Pulmonary embolism [Recovered/Resolved]
  - Syncope [Recovered/Resolved]

NARRATIVE: CASE EVENT DATE: 20221020
